APPROVED DRUG PRODUCT: GENTAMICIN SULFATE
Active Ingredient: GENTAMICIN SULFATE
Strength: EQ 0.3% BASE
Dosage Form/Route: SOLUTION/DROPS;OPHTHALMIC
Application: A065121 | Product #001 | TE Code: AT
Applicant: PADAGIS US LLC
Approved: Jan 30, 2004 | RLD: No | RS: No | Type: RX